FAERS Safety Report 13021154 (Version 1)
Quarter: 2016Q4

REPORT INFORMATION
  Report Type: Spontaneous
  Country: US (occurrence: US)
  Receive Date: 20161213
  Receipt Date: 20161213
  Transmission Date: 20170207
  Serious: No
  Sender: FDA-Public Use
  Company Number: US-BRISTOL-MYERS SQUIBB COMPANY-BMS-2016-102741

PATIENT
  Age: 16 Year
  Sex: Male
  Weight: 90.7 kg

DRUGS (2)
  1. WARFARIN SODIUM. [Suspect]
     Active Substance: WARFARIN SODIUM
     Indication: PRODUCT USED FOR UNKNOWN INDICATION
     Dosage: UNK
     Route: 065
     Dates: start: 2015
  2. REMODULIN [Suspect]
     Active Substance: TREPROSTINIL
     Indication: PULMONARY ARTERIAL HYPERTENSION
     Dosage: 100.4 ?G/KG, UNK
     Route: 058
     Dates: start: 20160307

REACTIONS (2)
  - Infusion site haemorrhage [Recovered/Resolved]
  - Infusion site oedema [Unknown]

NARRATIVE: CASE EVENT DATE: 20160817
